FAERS Safety Report 13503414 (Version 10)
Quarter: 2020Q1

REPORT INFORMATION
  Report Type: Spontaneous
  Country: CA (occurrence: CA)
  Receive Date: 20170502
  Receipt Date: 20200122
  Transmission Date: 20200409
  Serious: Yes (Other)
  Sender: FDA-Public Use
  Company Number: CA-PFIZER INC-2017183280

PATIENT
  Age: 58 Year
  Sex: Female

DRUGS (4)
  1. XELJANZ [Suspect]
     Active Substance: TOFACITINIB CITRATE
     Dosage: 5 MG, 2X/DAY
     Route: 048
     Dates: start: 20190401
  2. XELJANZ [Suspect]
     Active Substance: TOFACITINIB CITRATE
     Dosage: 5 MG, 1X/DAY
     Route: 048
     Dates: start: 20170507, end: 20170508
  3. XELJANZ [Suspect]
     Active Substance: TOFACITINIB CITRATE
     Indication: RHEUMATOID ARTHRITIS
     Dosage: 5 MG, 1X/DAY
     Route: 048
     Dates: start: 20170322, end: 20170429
  4. XELJANZ [Suspect]
     Active Substance: TOFACITINIB CITRATE
     Dosage: 5 MG, 2X/DAY
     Route: 048
     Dates: start: 201705, end: 20190301

REACTIONS (16)
  - Wrist fracture [Unknown]
  - Skin plaque [Unknown]
  - Swelling [Unknown]
  - Erythema [Unknown]
  - Mouth ulceration [Unknown]
  - Drug ineffective [Recovering/Resolving]
  - Nasopharyngitis [Unknown]
  - Pre-existing condition improved [Unknown]
  - Lung disorder [Not Recovered/Not Resolved]
  - Carpal tunnel syndrome [Unknown]
  - Eczema [Unknown]
  - Constipation [Not Recovered/Not Resolved]
  - Pain [Unknown]
  - Therapeutic response unexpected [Unknown]
  - Alopecia [Unknown]
  - Condition aggravated [Recovered/Resolved]

NARRATIVE: CASE EVENT DATE: 20170507
